FAERS Safety Report 11677216 (Version 2)
Quarter: 2016Q1

REPORT INFORMATION
  Report Type: Spontaneous
  Country: DE (occurrence: DE)
  Receive Date: 20151028
  Receipt Date: 20160201
  Transmission Date: 20160525
  Serious: Yes (Other)
  Sender: FDA-Public Use
  Company Number: DE-TEVA-603276GER

PATIENT
  Sex: Male

DRUGS (2)
  1. ALLOPURINOL 300 [Concomitant]
     Active Substance: ALLOPURINOL
     Indication: GOUT
     Dosage: 300 MILLIGRAM DAILY;
     Route: 048
     Dates: start: 20150727, end: 20150731
  2. CEFUROXIM-RATIOPHARM 500 MG FILMTABLETTEN [Suspect]
     Active Substance: CEFUROXIME
     Indication: ARTHRITIS INFECTIVE
     Dosage: 1000 MILLIGRAM DAILY;
     Route: 048
     Dates: start: 20150731, end: 20150811

REACTIONS (2)
  - Renal tubular disorder [Unknown]
  - Blood uric acid decreased [Unknown]
